FAERS Safety Report 14937337 (Version 1)
Quarter: 2018Q2

REPORT INFORMATION
  Report Type: Spontaneous
  Country: FR (occurrence: FR)
  Receive Date: 20180525
  Receipt Date: 20180525
  Transmission Date: 20180711
  Serious: Yes (Hospitalization)
  Sender: FDA-Public Use
  Company Number: FR-MERCK KGAA-2048439

PATIENT
  Age: 50 Year
  Sex: Female

DRUGS (1)
  1. NOVOTHYROX [Suspect]
     Active Substance: LEVOTHYROXINE SODIUM
     Indication: PRODUCT USED FOR UNKNOWN INDICATION

REACTIONS (22)
  - Arthralgia [None]
  - Paraesthesia [None]
  - Fatigue [None]
  - Low density lipoprotein increased [Not Recovered/Not Resolved]
  - Mean cell haemoglobin concentration decreased [Not Recovered/Not Resolved]
  - Alopecia [None]
  - Fear [None]
  - Dysstasia [None]
  - Pain [None]
  - Glomerular filtration rate decreased [None]
  - Walking aid user [None]
  - Dizziness [None]
  - Hormone level abnormal [None]
  - Musculoskeletal pain [None]
  - LDL/HDL ratio increased [None]
  - Neutrophil count decreased [Not Recovered/Not Resolved]
  - Mean cell haemoglobin decreased [Not Recovered/Not Resolved]
  - Temperature intolerance [None]
  - Hospitalisation [None]
  - Somnolence [None]
  - Loss of personal independence in daily activities [None]
  - Mean cell volume decreased [Recovered/Resolved]

NARRATIVE: CASE EVENT DATE: 2017
